FAERS Safety Report 10237054 (Version 4)
Quarter: 2014Q3

REPORT INFORMATION
  Report Type: Spontaneous
  Country: DE (occurrence: DE)
  Receive Date: 20140613
  Receipt Date: 20140810
  Transmission Date: 20150326
  Serious: Yes (Death, Life-Threatening, Hospitalization)
  Sender: FDA-Public Use
  Company Number: DE-BRISTOL-MYERS SQUIBB COMPANY-20936811

PATIENT
  Age: 70 Year
  Sex: Male
  Weight: 105 kg

DRUGS (7)
  1. EUCREAS [Concomitant]
     Active Substance: METFORMIN HYDROCHLORIDE\VILDAGLIPTIN
     Dosage: 1DF=50/850MG
  2. YERVOY [Suspect]
     Active Substance: IPILIMUMAB
     Indication: MALIGNANT MELANOMA STAGE IV
     Dosage: DOSE: 312 MG?DOSE:3MG/KG BODY WEIGHT
     Route: 042
  3. RAMIPRIL. [Concomitant]
     Active Substance: RAMIPRIL
     Dosage: RAMIPRIL 5
  4. METOPROLOL [Concomitant]
     Active Substance: METOPROLOL
  5. PAROXAT [Concomitant]
     Active Substance: PAROXETINE HYDROCHLORIDE
  6. ACTRAPID [Concomitant]
     Active Substance: INSULIN HUMAN
     Route: 058
  7. LANTUS [Concomitant]
     Active Substance: INSULIN GLARGINE
     Dosage: 1DF=6 IU
     Route: 058

REACTIONS (7)
  - Diabetes mellitus [Not Recovered/Not Resolved]
  - Coma [Not Recovered/Not Resolved]
  - Death [Fatal]
  - Delirium [Not Recovered/Not Resolved]
  - Myoglobin blood increased [Unknown]
  - Pulmonary sepsis [Not Recovered/Not Resolved]
  - Renal failure acute [Not Recovered/Not Resolved]

NARRATIVE: CASE EVENT DATE: 20140521
